FAERS Safety Report 19381356 (Version 1)
Quarter: 2021Q2

REPORT INFORMATION
  Report Type: Spontaneous
  Country: DE (occurrence: DE)
  Receive Date: 20210607
  Receipt Date: 20210607
  Transmission Date: 20210717
  Serious: Yes (Hospitalization)
  Sender: FDA-Public Use
  Company Number: DE-ACCORD-227125

PATIENT
  Age: 90 Year
  Sex: Male
  Weight: 76 kg

DRUGS (8)
  1. HYDROCHLOROTHIAZIDE. [Suspect]
     Active Substance: HYDROCHLOROTHIAZIDE
     Indication: PRODUCT USED FOR UNKNOWN INDICATION
     Dosage: 25 MG, 1?0?1?0
     Route: 048
  2. GLIVEC [Suspect]
     Active Substance: IMATINIB MESYLATE
     Indication: PRODUCT USED FOR UNKNOWN INDICATION
     Dosage: 400 MG, 0?0?1?0
     Route: 048
  3. TAMSULOSIN/TAMSULOSIN HYDROCHLORIDE [Concomitant]
     Active Substance: TAMSULOSIN HYDROCHLORIDE
     Dosage: 0.4 MG / EVERY 2ND DAY, 1?0?0?0
     Route: 048
  4. LOVASTATIN. [Concomitant]
     Active Substance: LOVASTATIN
     Dosage: 20 MG / EVERY 2ND DAY, 0?0?0.5?0
     Route: 048
  5. ELIQUIS [Concomitant]
     Active Substance: APIXABAN
     Dosage: 5 MG, 1?0?1?0
     Route: 048
  6. CARVEDILOL/CARVEDILOL HYDROCHLODRIDE [Concomitant]
     Active Substance: CARVEDILOL HYDROCHLORIDE
     Dosage: 25 MG, 1?0?0?0
     Route: 048
  7. PANTOPRAZOLE [Concomitant]
     Active Substance: PANTOPRAZOLE
     Dosage: 20 MG / EVERY 2ND DAY, 1?0?0?0
     Route: 048
  8. DOXAZOSIN/DOXAZOSIN MESILATE [Concomitant]
     Dosage: 1 MG, 0?0?1?0
     Route: 048

REACTIONS (6)
  - Dyspnoea exertional [Unknown]
  - Atrial fibrillation [Unknown]
  - Tachycardia [Unknown]
  - Weight increased [Unknown]
  - Electrolyte imbalance [Unknown]
  - Oedema peripheral [Unknown]
